FAERS Safety Report 18753875 (Version 2)
Quarter: 2021Q1

REPORT INFORMATION
  Report Type: Report from Study
  Country: None (occurrence: CA)
  Receive Date: 20210119
  Receipt Date: 20210202
  Transmission Date: 20210419
  Serious: Yes (Other)
  Sender: FDA-Public Use
  Company Number: CA-ABBVIE-21K-028-3733407-00

PATIENT
  Age: 21 Year
  Sex: Male

DRUGS (1)
  1. HUMIRA [Suspect]
     Active Substance: ADALIMUMAB
     Indication: CROHN^S DISEASE
     Route: 058
     Dates: start: 20190815

REACTIONS (9)
  - Crohn^s disease [Recovered/Resolved]
  - Loss of consciousness [Unknown]
  - Ileocaecal resection [Recovered/Resolved]
  - Anal fissure [Not Recovered/Not Resolved]
  - Appendicectomy [Unknown]
  - Headache [Not Recovered/Not Resolved]
  - Pancreatectomy [Unknown]
  - Gastrooesophageal reflux disease [Not Recovered/Not Resolved]
  - Muscle spasms [Not Recovered/Not Resolved]

NARRATIVE: CASE EVENT DATE: 20200617
